FAERS Safety Report 23421071 (Version 1)
Quarter: 2024Q1

REPORT INFORMATION
  Report Type: Spontaneous
  Country: US (occurrence: US)
  Receive Date: 20240119
  Receipt Date: 20240119
  Transmission Date: 20240409
  Serious: No
  Sender: FDA-Public Use
  Company Number: US-BAYER-2024A011482

PATIENT
  Age: 74 Year
  Sex: Male

DRUGS (1)
  1. LOTRIMIN ULTRA ATHLETES FOOT [Suspect]
     Active Substance: BUTENAFINE HYDROCHLORIDE
     Dosage: THIN FILM IN AFFECTED AREA, TWICE A DAY. DOSE
     Route: 061

REACTIONS (1)
  - Drug ineffective [Unknown]
